FAERS Safety Report 7358529-2 (Version None)
Quarter: 2011Q1

REPORT INFORMATION
  Report Type: 
  Country: None (occurrence: None)
  Receive Date: 20110317
  Receipt Date: 20110308
  Transmission Date: 20110831
  Serious: Yes (Other)
  Sender: FDA-Public Use
  Company Number: GB-TEVA-270397ISR

PATIENT
  Age: 48 Year
  Sex: Male

DRUGS (3)
  1. METHOTREXATE [Suspect]
     Indication: OROPHARYNGEAL CANCER STAGE IV
  2. THERAPEUTIC RADIOPHARMACEUTICALS [Suspect]
     Indication: OROPHARYNGEAL CANCER STAGE IV
  3. MORPHINE [Concomitant]
     Indication: ANALGESIC THERAPY

REACTIONS (2)
  - SKIN EXFOLIATION [None]
  - MUCOSAL INFLAMMATION [None]
